FAERS Safety Report 6442688-X (Version None)
Quarter: 2009Q4

REPORT INFORMATION
  Report Type: 
  Country: None (occurrence: None)
  Receive Date: 20091117
  Receipt Date: 20091111
  Transmission Date: 20100525
  Serious: Yes (Death, Life-Threatening)
  Sender: FDA-Public Use
  Company Number: JP-ROCHE-645475

PATIENT
  Sex: Male

DRUGS (12)
  1. DENOSINE IV [Suspect]
     Indication: CYTOMEGALOVIRUS INFECTION
     Dosage: FORM REPORTED: INFUSION.
     Route: 041
     Dates: start: 20081229, end: 20090107
  2. IMMUNE GLOBULIN INTRAVENOUS (HUMAN) [Suspect]
     Indication: CYTOMEGALOVIRUS INFECTION
     Dosage: DRUG REPORTED AS GAMMA-GLOBULIN (HUMAN NORMAL IMMUNOGLOBULIN)
     Route: 030
  3. NEORAL [Suspect]
     Indication: DRUG USE FOR UNKNOWN INDICATION
     Dosage: DOSE: 140MG-25MG.
     Route: 048
     Dates: start: 20081216, end: 20090103
  4. UNSPECIFIED DRUG [Suspect]
     Indication: DRUG USE FOR UNKNOWN INDICATION
     Dosage: DRUG REPORTED AS STEROID (ADRENAL HORMONE PREPARATIONS)
     Route: 065
     Dates: start: 20081205, end: 20081216
  5. PREDONINE [Suspect]
     Indication: DRUG USE FOR UNKNOWN INDICATION
     Route: 042
     Dates: start: 20090104, end: 20090106
  6. INOVAN [Concomitant]
     Route: 042
     Dates: start: 20090103, end: 20090108
  7. PRODIF [Concomitant]
     Route: 042
     Dates: start: 20090103, end: 20090106
  8. FUTHAN [Concomitant]
     Route: 042
     Dates: start: 20090103, end: 20090105
  9. ADONA [Concomitant]
     Dosage: ADONA INJECTION
     Route: 042
     Dates: start: 20090105, end: 20090107
  10. FOSMICIN S [Concomitant]
     Dosage: INTRAVENOUS DRIP
     Route: 042
     Dates: start: 20090105, end: 20090107
  11. ROHYPNOL [Concomitant]
     Route: 042
     Dates: start: 20090105, end: 20090106
  12. NEOPHAGEN [Concomitant]
     Route: 042
     Dates: start: 20081227, end: 20090108

REACTIONS (3)
  - CYTOMEGALOVIRUS INFECTION [None]
  - PANCYTOPENIA [None]
  - RENAL DISORDER [None]
